FAERS Safety Report 14013478 (Version 1)
Quarter: 2017Q3

REPORT INFORMATION
  Report Type: Spontaneous
  Country: US (occurrence: US)
  Receive Date: 20170926
  Receipt Date: 20170926
  Transmission Date: 20171128
  Serious: No
  Sender: FDA-Public Use
  Company Number: US-MYLANLABS-2016M1042109

PATIENT
  Age: 78 Year
  Sex: Female

DRUGS (1)
  1. ENALAPRIL MALEATE TABLETS, USP [Suspect]
     Active Substance: ENALAPRIL MALEATE
     Indication: BLOOD PRESSURE MANAGEMENT
     Dosage: 5 MG, QD
     Route: 048

REACTIONS (2)
  - Dysgeusia [Not Recovered/Not Resolved]
  - Tongue discomfort [Not Recovered/Not Resolved]

NARRATIVE: CASE EVENT DATE: 201609
